FAERS Safety Report 4466955-4 (Version None)
Quarter: 2004Q4

REPORT INFORMATION
  Report Type: 
  Country: None (occurrence: None)
  Receive Date: 20041006
  Receipt Date: 20040929
  Transmission Date: 20050328
  Serious: Yes (Hospitalization)
  Sender: FDA-Public Use
  Company Number: 200413623FR

PATIENT
  Age: 90 Year
  Sex: Female

DRUGS (7)
  1. TORENTAL LP 400 MG [Suspect]
     Route: 048
     Dates: end: 20040831
  2. LASILIX [Suspect]
     Route: 048
     Dates: start: 20040831
  3. COZAAR [Suspect]
     Route: 048
  4. CORDIPATCH [Suspect]
     Route: 003
     Dates: start: 20040831
  5. PLAVIX [Concomitant]
     Route: 048
  6. LEXOMIL ROCHE [Concomitant]
     Route: 048
  7. LEVOTHYROX [Concomitant]
     Route: 048

REACTIONS (8)
  - BLOOD CHLORIDE DECREASED [None]
  - BLOOD SODIUM DECREASED [None]
  - DRUG INTERACTION [None]
  - ECG SIGNS OF MYOCARDIAL ISCHAEMIA [None]
  - HYPOTENSION [None]
  - LOSS OF CONSCIOUSNESS [None]
  - MALAISE [None]
  - MYOGLOBIN BLOOD INCREASED [None]
